FAERS Safety Report 18803551 (Version 3)
Quarter: 2025Q3

REPORT INFORMATION
  Report Type: Spontaneous
  Country: EU (occurrence: EU)
  Receive Date: 20210129
  Receipt Date: 20250725
  Transmission Date: 20251021
  Serious: Yes (Other)
  Sender: AUROBINDO
  Company Number: EU-PFIZER INC-2021017196

PATIENT
  Age: 71 Year
  Sex: Female

DRUGS (16)
  1. AZITHROMYCIN [Suspect]
     Active Substance: AZITHROMYCIN
     Indication: Mycobacterial infection
     Route: 065
     Dates: start: 201309, end: 201503
  2. MOXIFLOXACIN [Suspect]
     Active Substance: MOXIFLOXACIN
     Indication: Mycobacterial infection
     Route: 065
  3. ETHAMBUTOL [Suspect]
     Active Substance: ETHAMBUTOL HYDROCHLORIDE
     Indication: Mycobacterial infection
     Route: 065
  4. RIFABUTIN [Suspect]
     Active Substance: RIFABUTIN
     Indication: Mycobacterial infection
     Route: 065
  5. BUDESONIDE [Suspect]
     Active Substance: BUDESONIDE
     Indication: Asthma
     Route: 065
  6. MEDROL [Suspect]
     Active Substance: METHYLPREDNISOLONE
     Indication: Asthma
     Route: 065
  7. MEPOLIZUMAB [Suspect]
     Active Substance: MEPOLIZUMAB
     Indication: Asthma
     Route: 065
  8. FORMOTEROL FUMARATE [Suspect]
     Active Substance: FORMOTEROL FUMARATE
     Indication: Asthma
     Route: 065
  9. MONTELUKAST SODIUM [Suspect]
     Active Substance: MONTELUKAST SODIUM
     Indication: Asthma
     Route: 065
  10. ALBUTEROL [Suspect]
     Active Substance: ALBUTEROL
     Indication: Asthma
     Route: 065
  11. TRIAMCINOLONE [Suspect]
     Active Substance: TRIAMCINOLONE
     Indication: Asthma
     Route: 065
  12. BECLOMETHASONE DIPROPIONATE [Suspect]
     Active Substance: BECLOMETHASONE DIPROPIONATE
     Indication: Asthma
     Route: 065
  13. THEOPHYLLINE [Suspect]
     Active Substance: THEOPHYLLINE
     Indication: Asthma
     Route: 065
  14. TIOTROPIUM BROMIDE [Suspect]
     Active Substance: TIOTROPIUM BROMIDE
     Indication: Asthma
     Route: 065
  15. SALMETEROL [Suspect]
     Active Substance: SALMETEROL
     Indication: Asthma
     Route: 065
  16. FLUTICASONE PROPIONATE\SALMETEROL XINAFOATE [Suspect]
     Active Substance: FLUTICASONE PROPIONATE\SALMETEROL XINAFOATE
     Indication: Asthma
     Route: 065

REACTIONS (2)
  - Therapeutic product effect incomplete [Unknown]
  - Drug ineffective [Unknown]
